FAERS Safety Report 9517045 (Version 2)
Quarter: 2013Q4

REPORT INFORMATION
  Report Type: Spontaneous
  Country: US (occurrence: US)
  Receive Date: 20130911
  Receipt Date: 20131022
  Transmission Date: 20140711
  Serious: No
  Sender: FDA-Public Use
  Company Number: US-PFIZER INC-2013257787

PATIENT
  Age: 77 Year
  Sex: Male

DRUGS (4)
  1. SUTENT [Suspect]
     Indication: METASTATIC RENAL CELL CARCINOMA
     Dosage: 50 MG, 1X/DAY
     Route: 048
     Dates: start: 20130423, end: 20130723
  2. COUMADINE [Concomitant]
     Indication: ATRIAL FIBRILLATION
     Dosage: 2.5 MG, 1X/DAY
  3. FLOMAX [Concomitant]
     Indication: BENIGN PROSTATIC HYPERPLASIA
     Dosage: 0.5 MG, UNK
  4. METOPROLOL [Concomitant]
     Indication: HYPERTENSION
     Dosage: 50 MG, 1X/DAY

REACTIONS (3)
  - Drug intolerance [Unknown]
  - Mucosal inflammation [Recovered/Resolved]
  - Gingival bleeding [Unknown]
